FAERS Safety Report 6934931-5 (Version None)
Quarter: 2010Q3

REPORT INFORMATION
  Report Type: 
  Country: None (occurrence: None)
  Receive Date: 20100821
  Receipt Date: 20100810
  Transmission Date: 20110219
  Serious: Yes (Hospitalization)
  Sender: FDA-Public Use
  Company Number: GXKR2010JP08714

PATIENT
  Age: 49 Year
  Sex: Female

DRUGS (1)
  1. RIFAMPICIN SANDOZ (NGX) [Suspect]
     Indication: ATYPICAL MYCOBACTERIAL INFECTION
     Route: 048

REACTIONS (1)
  - NEPHROTIC SYNDROME [None]
